FAERS Safety Report 7188496-6 (Version None)
Quarter: 2010Q4

REPORT INFORMATION
  Report Type: 
  Country: None (occurrence: None)
  Receive Date: 20101222
  Receipt Date: 20100720
  Transmission Date: 20110411
  Serious: No
  Sender: FDA-Public Use
  Company Number: US-AMGEN-KDL423728

PATIENT

DRUGS (9)
  1. ENBREL [Suspect]
     Indication: RHEUMATOID ARTHRITIS
     Dosage: 50 NG, QWK
     Route: 058
     Dates: start: 20021212
  2. METHOTREXATE [Concomitant]
  3. FOLIC ACID [Concomitant]
     Dosage: UNK UNK, UNK
     Dates: start: 20100518
  4. ALENDRONATE SODIUM [Concomitant]
     Dosage: UNK UNK, UNK
     Dates: start: 20100518
  5. HYDROCHLOROTHIAZIDE [Concomitant]
  6. PREDNISONE [Concomitant]
     Dosage: UNK UNK, UNK
     Dates: start: 20100518
  7. ESOMEPRAZOLE MAGNESIUM [Concomitant]
  8. NIFEDIPINE [Concomitant]
  9. UNSPECIFIED MEDICATION [Concomitant]

REACTIONS (8)
  - AORTIC ARTERIOSCLEROSIS [None]
  - AORTIC DILATATION [None]
  - ENTHESOPATHY [None]
  - JOINT DISLOCATION [None]
  - JOINT EFFUSION [None]
  - KYPHOSIS [None]
  - OSTEOARTHRITIS [None]
  - RHEUMATOID ARTHRITIS [None]
